FAERS Safety Report 5042725-3 (Version None)
Quarter: 2006Q3

REPORT INFORMATION
  Report Type: 
  Country: None (occurrence: None)
  Receive Date: 20060705
  Receipt Date: 20060418
  Transmission Date: 20061208
  Serious: Yes (Death, Other)
  Sender: FDA-Public Use
  Company Number: JP-AVENTIS-200611280JP

PATIENT
  Age: 93 Year
  Sex: Female
  Weight: 35 kg

DRUGS (8)
  1. RYTHMODAN [Suspect]
     Indication: HYPERTROPHIC CARDIOMYOPATHY
     Route: 048
     Dates: start: 20060316, end: 20060324
  2. LASIX [Suspect]
     Indication: OEDEMA PERIPHERAL
     Route: 048
     Dates: start: 20060313, end: 20060324
  3. ALDACTONE [Suspect]
     Indication: OEDEMA
     Route: 048
     Dates: start: 20060313, end: 20060318
  4. FRANDOL [Concomitant]
     Indication: ANGINA PECTORIS
     Route: 062
     Dates: start: 20060316, end: 20060324
  5. SODIUM BICARBONATE [Concomitant]
     Indication: RENAL IMPAIRMENT
     Route: 048
     Dates: start: 20060316, end: 20060324
  6. GASTER [Concomitant]
     Indication: GASTRITIS
     Route: 048
     Dates: start: 20060316, end: 20060324
  7. SOLANAX [Concomitant]
     Indication: INSOMNIA
     Route: 048
     Dates: start: 20060316, end: 20060324
  8. MAGNESIUM OXIDE [Concomitant]
     Indication: CONSTIPATION
     Route: 048
     Dates: start: 20060316, end: 20060324

REACTIONS (7)
  - DEHYDRATION [None]
  - GENERAL PHYSICAL CONDITION ABNORMAL [None]
  - HYPOGLYCAEMIA [None]
  - HYPOGLYCAEMIC COMA [None]
  - HYPOVOLAEMIA [None]
  - PNEUMONIA ASPIRATION [None]
  - RENAL IMPAIRMENT [None]
